FAERS Safety Report 4919337-2 (Version None)
Quarter: 2006Q1

REPORT INFORMATION
  Report Type: 
  Country: None (occurrence: None)
  Receive Date: 20060216
  Receipt Date: 20060203
  Transmission Date: 20060701
  Serious: Yes (Other)
  Sender: FDA-Public Use
  Company Number: 2006019007

PATIENT
  Age: 74 Year
  Sex: Female
  Weight: 55.3388 kg

DRUGS (6)
  1. XALATAN [Suspect]
     Indication: GLAUCOMA
     Dosage: 2 DROP (2 DROP, 1 IN 1 D), OPHTHALMIC; YEARS
     Route: 047
  2. TIMOPTIC [Concomitant]
  3. ALPHAGAN [Concomitant]
  4. ATENOLOL [Concomitant]
  5. NORVASC [Concomitant]
  6. ZETIA [Concomitant]

REACTIONS (9)
  - CAROTID ARTERY OCCLUSION [None]
  - CONDITION AGGRAVATED [None]
  - DRY EYE [None]
  - EYE INJURY [None]
  - EYE LASER SURGERY [None]
  - FALL [None]
  - GLAUCOMA [None]
  - MYOCARDIAL INFARCTION [None]
  - VISUAL DISTURBANCE [None]
